FAERS Safety Report 9440166 (Version 2)
Quarter: 2013Q3

REPORT INFORMATION
  Report Type: Spontaneous
  Country: JP (occurrence: JP)
  Receive Date: 20130805
  Receipt Date: 20130909
  Transmission Date: 20140515
  Serious: Yes (Hospitalization)
  Sender: FDA-Public Use
  Company Number: PHHY2013JP082974

PATIENT
  Age: 63 Year
  Sex: Female

DRUGS (6)
  1. FEMARA [Suspect]
     Indication: BREAST CANCER RECURRENT
     Dosage: 2.5 MG, DAILY
     Route: 048
     Dates: start: 20130502, end: 20130615
  2. FEMARA [Suspect]
     Dosage: 2.5 MG, DAILY
     Route: 048
     Dates: start: 20130627, end: 20130711
  3. ARIMIDEX [Suspect]
     Indication: BREAST CANCER RECURRENT
     Dosage: 1 MG, DAILY
     Route: 048
     Dates: start: 20100315, end: 20130423
  4. ARIMIDEX [Suspect]
     Dosage: UNK UKN, UNK
  5. HERCEPTIN [Concomitant]
     Dosage: UNK UKN, UNK
     Route: 041
     Dates: start: 20130330
  6. AROMASIN [Concomitant]
     Dosage: 25 MG, UNK
     Route: 048
     Dates: start: 20130718

REACTIONS (6)
  - Cellulitis [Recovering/Resolving]
  - Erythema [Unknown]
  - Swelling [Unknown]
  - Musculoskeletal stiffness [Not Recovered/Not Resolved]
  - Hypoaesthesia [Not Recovered/Not Resolved]
  - Rash [Recovered/Resolved]
